FAERS Safety Report 9858506 (Version 1)
Quarter: 2014Q1

REPORT INFORMATION
  Report Type: Spontaneous
  Country: US (occurrence: None)
  Receive Date: 20140130
  Receipt Date: 20140130
  Transmission Date: 20141002
  Serious: Yes (Other)
  Sender: FDA-Public Use
  Company Number: None

PATIENT
  Age: 25 Year
  Sex: Female

DRUGS (4)
  1. SKYLA [Suspect]
  2. EFFEXOR XL [Concomitant]
  3. LAMICTAL/LAMOTRIGINE [Concomitant]
  4. VALTREX [Concomitant]

REACTIONS (9)
  - Abdominal pain [None]
  - Metrorrhagia [None]
  - Nausea [None]
  - Vomiting [None]
  - Flatulence [None]
  - Constipation [None]
  - Abdominal distension [None]
  - Ovarian cyst ruptured [None]
  - Asthenia [None]
